FAERS Safety Report 16150348 (Version 5)
Quarter: 2019Q3

REPORT INFORMATION
  Report Type: Report from Study
  Country: CO (occurrence: CO)
  Receive Date: 20190403
  Receipt Date: 20190717
  Transmission Date: 20191004
  Serious: Yes (Hospitalization)
  Sender: FDA-Public Use
  Company Number: PHHY2019CO073782

PATIENT
  Age: 13 Year
  Sex: Female

DRUGS (2)
  1. TASIGNA [Suspect]
     Active Substance: NILOTINIB
     Indication: CHRONIC MYELOID LEUKAEMIA
     Dosage: 800 MG, QD
     Route: 048
  2. TASIGNA [Suspect]
     Active Substance: NILOTINIB
     Dosage: 800 MG, Q12H
     Route: 048
     Dates: start: 20190112

REACTIONS (13)
  - Incorrect dose administered [Unknown]
  - Skin fissures [Not Recovered/Not Resolved]
  - Myopathy [Recovering/Resolving]
  - Ischaemia [Not Recovered/Not Resolved]
  - Eye pain [Not Recovered/Not Resolved]
  - Inappropriate schedule of product administration [Unknown]
  - Thrombosis [Not Recovered/Not Resolved]
  - Facial paralysis [Unknown]
  - Headache [Not Recovered/Not Resolved]
  - Peripheral paralysis [Recovering/Resolving]
  - Lung disorder [Not Recovered/Not Resolved]
  - Facial asymmetry [Not Recovered/Not Resolved]
  - Pain in extremity [Not Recovered/Not Resolved]

NARRATIVE: CASE EVENT DATE: 20091120
